FAERS Safety Report 26101720 (Version 1)
Quarter: 2025Q4

REPORT INFORMATION
  Report Type: Spontaneous
  Country: EU (occurrence: EU)
  Receive Date: 20251128
  Receipt Date: 20251128
  Transmission Date: 20260118
  Serious: Yes (Disabling)
  Sender: PFIZER
  Company Number: EU-PFIZER INC-PV202500139995

PATIENT
  Age: 29 Year
  Sex: Female
  Weight: 65 kg

DRUGS (2)
  1. INFLIXIMAB [Suspect]
     Active Substance: INFLIXIMAB
     Indication: Crohn^s disease
     Dosage: 1 IV INFUSION OF 5MG/KG PER WEEK 0, 2, 6 AND THEN EVERY 8 WEEKS
     Route: 042
     Dates: start: 20240112, end: 20240112
  2. AZATIOPRINA [AZATHIOPRINE SODIUM] [Concomitant]
     Dosage: UNK

REACTIONS (1)
  - Complex regional pain syndrome [Recovering/Resolving]

NARRATIVE: CASE EVENT DATE: 20240123
